FAERS Safety Report 23558364 (Version 2)
Quarter: 2025Q1

REPORT INFORMATION
  Report Type: Report from Study
  Country: ZA (occurrence: ZA)
  Receive Date: 20240223
  Receipt Date: 20250220
  Transmission Date: 20250408
  Serious: Yes (Other)
  Sender: ROCHE
  Company Number: ZA-ROCHE-3510046

PATIENT
  Sex: Female

DRUGS (1)
  1. OCREVUS [Suspect]
     Active Substance: OCRELIZUMAB
     Indication: Primary progressive multiple sclerosis
     Dosage: SUBSEQUENT DOSE RECEIVED ON MAY/2023?THEREAFTER 600MG EVERY 6 MONTHS
     Route: 040
     Dates: start: 20230424

REACTIONS (14)
  - Paraparesis [Unknown]
  - Muscular weakness [Unknown]
  - Expanded disability status scale score increased [Unknown]
  - CD19 lymphocytes increased [Unknown]
  - B-lymphocyte count increased [Unknown]
  - Blood immunoglobulin G increased [Unknown]
  - Lumbar spinal stenosis [Unknown]
  - Multiple sclerosis [Unknown]
  - Facet joint syndrome [Unknown]
  - Intervertebral disc protrusion [Unknown]
  - Intervertebral disc protrusion [Unknown]
  - Vertebral osteophyte [Unknown]
  - Conus medullaris syndrome [Unknown]
  - Intervertebral disc annular tear [Unknown]
